FAERS Safety Report 4356355-X (Version None)
Quarter: 2004Q2

REPORT INFORMATION
  Report Type: 
  Country: None (occurrence: None)
  Receive Date: 20040511
  Receipt Date: 20040511
  Transmission Date: 20050107
  Serious: Yes (Hospitalization)
  Sender: FDA-Public Use
  Company Number: None

PATIENT
  Age: 74 Year
  Sex: Male
  Weight: 77.1115 kg

DRUGS (10)
  1. MOBIC [Suspect]
     Dosage: 7.5 Q DAY ORAL
     Route: 048
  2. AMBIEN [Concomitant]
  3. BACLOFEN [Concomitant]
  4. PROTONIX [Concomitant]
  5. LIPITOR [Concomitant]
  6. TRICOR [Concomitant]
  7. ZYRTEC [Concomitant]
  8. LASIX [Concomitant]
  9. DARVOCET [Concomitant]
  10. LORTAB [Concomitant]

REACTIONS (2)
  - BLOOD POTASSIUM INCREASED [None]
  - RENAL FAILURE ACUTE [None]
